FAERS Safety Report 20871841 (Version 1)
Quarter: 2022Q2

REPORT INFORMATION
  Report Type: Spontaneous
  Country: US (occurrence: US)
  Receive Date: 20220525
  Receipt Date: 20220525
  Transmission Date: 20220720
  Serious: Yes (Death, Other)
  Sender: FDA-Public Use
  Company Number: US-BRISTOL-MYERS SQUIBB COMPANY-2022-044895

PATIENT
  Age: 60 Year
  Sex: Female
  Weight: 49.8 kg

DRUGS (1)
  1. OPDIVO [Suspect]
     Active Substance: NIVOLUMAB
     Indication: Lung neoplasm malignant
     Dosage: 2 VIALS OF 140MG
     Route: 042

REACTIONS (2)
  - Death [Fatal]
  - Prescribed overdose [Unknown]
